FAERS Safety Report 18283176 (Version 4)
Quarter: 2021Q4

REPORT INFORMATION
  Report Type: Spontaneous
  Country: US (occurrence: US)
  Receive Date: 20200918
  Receipt Date: 20211215
  Transmission Date: 20220303
  Serious: Yes (Life-Threatening, Hospitalization, Other)
  Sender: FDA-Public Use
  Company Number: US-VERTEX PHARMACEUTICALS-2020-007345

PATIENT
  Sex: Female
  Weight: 57 kg

DRUGS (4)
  1. TRIKAFTA [Suspect]
     Active Substance: ELEXACAFTOR\IVACAFTOR\TEZACAFTOR
     Indication: Cystic fibrosis
     Dosage: 2 TAB (ELEXA 100 MG/ TEZA 50 MG/ IVA 75 MG) AM, 1 TAB (IVA 50 MG) PM; BID
     Route: 048
     Dates: start: 20191217
  2. PULMOZYME [Concomitant]
     Active Substance: DORNASE ALFA
     Indication: Cystic fibrosis
  3. PLAQUENIL [Concomitant]
     Active Substance: HYDROXYCHLOROQUINE SULFATE
  4. TOPROL XL [Concomitant]
     Active Substance: METOPROLOL SUCCINATE

REACTIONS (4)
  - Exposure during pregnancy [Unknown]
  - Foetal growth restriction [Unknown]
  - Premature delivery [Recovered/Resolved]
  - Umbilical cord vascular disorder [Recovered/Resolved]

NARRATIVE: CASE EVENT DATE: 20200101
